FAERS Safety Report 6957533-3 (Version None)
Quarter: 2010Q3

REPORT INFORMATION
  Report Type: 
  Country: None (occurrence: None)
  Receive Date: 20100831
  Receipt Date: 20100820
  Transmission Date: 20110219
  Serious: Yes (Hospitalization, Other)
  Sender: FDA-Public Use
  Company Number: US-ELI_LILLY_AND_COMPANY-US201007006165

PATIENT
  Sex: Female
  Weight: 104.31 kg

DRUGS (7)
  1. BYETTA [Suspect]
     Indication: TYPE 2 DIABETES MELLITUS
     Dosage: 5 UG, 2/D
     Route: 058
     Dates: start: 20060101
  2. BYETTA [Suspect]
     Dosage: 10 UG, 2/D
     Route: 058
  3. BYETTA [Suspect]
     Dosage: 5 UG, 2/D
     Route: 058
  4. METFORMIN [Concomitant]
  5. PRANDIN [Concomitant]
     Indication: TYPE 2 DIABETES MELLITUS
     Dosage: 2 MG, 2/D
  6. FISH OIL [Concomitant]
  7. ORAL BLOOD GLUCOSE LOWERING DRUGS [Concomitant]
     Indication: TYPE 2 DIABETES MELLITUS
     Dosage: 5 MG, EACH MORNING
     Route: 048

REACTIONS (14)
  - AGITATION [None]
  - ANGIOEDEMA [None]
  - BLOOD GLUCOSE DECREASED [None]
  - BLOOD GLUCOSE INCREASED [None]
  - DYSPNOEA [None]
  - EAR DISORDER [None]
  - HEADACHE [None]
  - HYPERHIDROSIS [None]
  - MALAISE [None]
  - MOBILITY DECREASED [None]
  - PNEUMONIA [None]
  - SWOLLEN TONGUE [None]
  - TREMOR [None]
  - WEIGHT DECREASED [None]
